FAERS Safety Report 13486279 (Version 2)
Quarter: 2020Q3

REPORT INFORMATION
  Report Type: Report from Study
  Country: RU (occurrence: RU)
  Receive Date: 20170426
  Receipt Date: 20170428
  Transmission Date: 20201105
  Serious: Yes (Hospitalization, Other)
  Sender: FDA-Public Use
  Company Number: RU-JNJFOC-20160316908

PATIENT
  Age: 55 Year
  Sex: Male
  Weight: 83.5 kg

DRUGS (10)
  1. FOLIC ACID. [Concomitant]
     Active Substance: FOLIC ACID
     Indication: DRUG TOXICITY PROPHYLAXIS
     Route: 048
     Dates: start: 201412
  2. OMEPRAZOLE. [Concomitant]
     Active Substance: OMEPRAZOLE
     Indication: GASTROINTESTINAL DISORDER THERAPY
     Route: 048
     Dates: start: 201412
  3. CETRINE [Concomitant]
     Indication: DERMATITIS ALLERGIC
     Route: 048
     Dates: start: 20160118, end: 20160121
  4. KETOPROFEN. [Concomitant]
     Active Substance: KETOPROFEN
     Indication: PSORIATIC ARTHROPATHY
     Route: 048
     Dates: start: 201412
  5. METRONIDAZOLE. [Concomitant]
     Active Substance: METRONIDAZOLE
     Indication: DYSBIOSIS
     Route: 048
     Dates: start: 20160114, end: 20160118
  6. GOLIMUMAB [Suspect]
     Active Substance: GOLIMUMAB
     Route: 042
  7. SALICYLIC ACID. [Concomitant]
     Active Substance: SALICYLIC ACID
     Route: 061
  8. KREON 10000 [Concomitant]
     Active Substance: PANCRELIPASE
     Indication: DYSBIOSIS
     Route: 048
     Dates: start: 20160110
  9. GOLIMUMAB [Suspect]
     Active Substance: GOLIMUMAB
     Indication: PSORIATIC ARTHROPATHY
     Route: 042
     Dates: start: 20150706, end: 20160121
  10. METHOTREXATE. [Concomitant]
     Active Substance: METHOTREXATE
     Indication: PSORIATIC ARTHROPATHY
     Route: 030
     Dates: start: 201412

REACTIONS (1)
  - Colon cancer [Recovered/Resolved]

NARRATIVE: CASE EVENT DATE: 20160203
